FAERS Safety Report 17376355 (Version 3)
Quarter: 2020Q2

REPORT INFORMATION
  Report Type: Spontaneous
  Country: JP (occurrence: JP)
  Receive Date: 20200206
  Receipt Date: 20200408
  Transmission Date: 20200713
  Serious: Yes (Hospitalization, Other)
  Sender: FDA-Public Use
  Company Number: JP-ALK-ABELLO A/S-2020AA000300

PATIENT

DRUGS (3)
  1. MITICURE [Suspect]
     Active Substance: DERMATOPHAGOIDES FARINAE\DERMATOPHAGOIDES PTERONYSSINUS
     Indication: RHINITIS ALLERGIC
     Dosage: 3300 JAU, QD
     Route: 060
     Dates: start: 20180626, end: 20180702
  2. XYZAL [Concomitant]
     Active Substance: LEVOCETIRIZINE DIHYDROCHLORIDE
     Indication: RHINITIS ALLERGIC
     Dosage: 5 MILLIGRAM, QD
     Route: 048
     Dates: start: 20190913
  3. MITICURE [Suspect]
     Active Substance: DERMATOPHAGOIDES FARINAE\DERMATOPHAGOIDES PTERONYSSINUS
     Dosage: 10000 JAU, QD
     Route: 060
     Dates: start: 20180703, end: 201912

REACTIONS (1)
  - Crohn^s disease [Recovering/Resolving]

NARRATIVE: CASE EVENT DATE: 201912
